FAERS Safety Report 9297698 (Version 1)
Quarter: 2013Q2

REPORT INFORMATION
  Report Type: Spontaneous
  Country: US (occurrence: US)
  Receive Date: 20130520
  Receipt Date: 20130520
  Transmission Date: 20140414
  Serious: No
  Sender: FDA-Public Use
  Company Number: US-PFIZER INC-2013154319

PATIENT
  Sex: Female

DRUGS (5)
  1. LYRICA [Suspect]
     Indication: NEUROPATHY PERIPHERAL
     Dosage: UNK, 2X/DAY
     Dates: start: 2012
  2. LYRICA [Suspect]
     Indication: FIBROMYALGIA
     Dosage: UNK, 3X/DAY
  3. RANITIDINE [Concomitant]
     Indication: GASTROOESOPHAGEAL REFLUX DISEASE
     Dosage: 50 MG, 2X/DAY
  4. DEXILANT [Concomitant]
     Indication: GASTROOESOPHAGEAL REFLUX DISEASE
     Dosage: 150 MG, 2X/DAY
  5. PREDNISOLONE [Concomitant]
     Indication: SARCOIDOSIS
     Dosage: UNK, AS NEEDED

REACTIONS (1)
  - Drug ineffective [Unknown]
